FAERS Safety Report 5763692-0 (Version None)
Quarter: 2008Q2

REPORT INFORMATION
  Report Type: 
  Country: None (occurrence: None)
  Receive Date: 20080610
  Receipt Date: 20080529
  Transmission Date: 20081010
  Serious: Yes (Other)
  Sender: FDA-Public Use
  Company Number: FR-BRISTOL-MYERS SQUIBB COMPANY-14218770

PATIENT
  Age: 63 Year
  Sex: Male

DRUGS (6)
  1. ENDOXAN [Suspect]
     Indication: BURKITT'S LYMPHOMA
     Route: 065
     Dates: start: 20060801
  2. ONCOVIN [Suspect]
     Indication: BURKITT'S LYMPHOMA
     Route: 065
     Dates: start: 20060801
  3. METHOTREXATE [Suspect]
     Indication: BURKITT'S LYMPHOMA
     Route: 065
     Dates: start: 20060801
  4. ADRIAMYCIN PFS [Suspect]
     Indication: BURKITT'S LYMPHOMA
     Route: 065
     Dates: start: 20060801
  5. PREDNISOLONE [Suspect]
     Indication: BURKITT'S LYMPHOMA
     Route: 065
     Dates: start: 20060801
  6. RITUXIMAB [Suspect]
     Indication: BURKITT'S LYMPHOMA
     Route: 065

REACTIONS (1)
  - GASTRIC HAEMORRHAGE [None]
